FAERS Safety Report 9787120 (Version 9)
Quarter: 2015Q3

REPORT INFORMATION
  Report Type: Report from Study
  Country: BR (occurrence: BR)
  Receive Date: 20131228
  Receipt Date: 20150812
  Transmission Date: 20151125
  Serious: Yes (Hospitalization, Disabling, Other)
  Sender: FDA-Public Use
  Company Number: BR-ROCHE-1104772

PATIENT
  Age: 71 Year
  Sex: Female
  Weight: 54 kg

DRUGS (29)
  1. ACTEMRA [Suspect]
     Active Substance: TOCILIZUMAB
     Route: 042
     Dates: start: 201304, end: 201309
  2. OMEGA 3 [Concomitant]
     Active Substance: OMEGA-3 FATTY ACIDS
  3. ALENIA (BRAZIL) [Concomitant]
     Active Substance: BUDESONIDE\FORMOTEROL FUMARATE
     Indication: EMPHYSEMA
     Dosage: TAKEN IN THE MORNING AND AT NIGHT
     Route: 065
  4. REUQUINOL [Concomitant]
     Active Substance: HYDROXYCHLOROQUINE SULFATE
     Indication: ARTHRITIS
     Route: 065
  5. XARELTO [Concomitant]
     Active Substance: RIVAROXABAN
  6. TRAMADOL. [Concomitant]
     Active Substance: TRAMADOL
     Route: 065
  7. B-COMPLEX VITAMINS [Concomitant]
  8. MACRODANTIN [Concomitant]
     Active Substance: NITROFURANTOIN
     Route: 065
  9. OSCAL [Concomitant]
     Active Substance: CALCIUM CARBONATE
  10. PURAN [Concomitant]
     Active Substance: LEVOTHYROXINE SODIUM
     Route: 065
  11. PURAN [Concomitant]
     Active Substance: LEVOTHYROXINE SODIUM
     Route: 065
  12. PANTOPRAZOLE [Concomitant]
     Active Substance: PANTOPRAZOLE SODIUM
     Indication: PROPHYLAXIS
     Route: 065
  13. PROPOLIS EXTRACT [Concomitant]
  14. ACTEMRA [Suspect]
     Active Substance: TOCILIZUMAB
     Dosage: IN MAY/2014, SHE RECEIVED LAST DOSE OF TOCILIZUMAB. THE THERAPY OF TOCILIZUMAB STARTED FROM 26/JUL/2
     Route: 042
     Dates: start: 201402
  15. SEROQUEL [Concomitant]
     Active Substance: QUETIAPINE FUMARATE
  16. ROYAL JELLY [Concomitant]
     Active Substance: ROYAL JELLY
  17. SPIRONOLACTONE. [Concomitant]
     Active Substance: SPIRONOLACTONE
     Route: 065
  18. ACTEMRA [Suspect]
     Active Substance: TOCILIZUMAB
     Indication: RHEUMATOID ARTHRITIS
     Route: 042
     Dates: start: 20120726, end: 201209
  19. PRELONE [Concomitant]
     Active Substance: PREDNISOLONE
     Indication: C-REACTIVE PROTEIN
     Route: 065
  20. DEPURA [Concomitant]
     Active Substance: CHOLECALCIFEROL
     Dosage: 12 GT
     Route: 065
  21. SOMALGIN [Concomitant]
     Active Substance: ASPIRIN\DIHYDROXYALUMINUM AMINOACETATE ANHYDROUS\MAGNESIUM CARBONATE
     Route: 065
  22. ROSUVASTATIN CALCIUM. [Concomitant]
     Active Substance: ROSUVASTATIN CALCIUM
     Route: 065
  23. CELEBRA [Concomitant]
     Active Substance: CELECOXIB
     Route: 065
  24. ULTRACET [Concomitant]
     Active Substance: ACETAMINOPHEN\TRAMADOL HYDROCHLORIDE
  25. TRAMADOL HYDROCHLORIDE. [Concomitant]
     Active Substance: TRAMADOL HYDROCHLORIDE
  26. REPOFLOR [Concomitant]
     Indication: GASTROINTESTINAL DISORDER
  27. CYMBALTA [Concomitant]
     Active Substance: DULOXETINE HYDROCHLORIDE
  28. LINSEED OIL [Concomitant]
     Active Substance: LINSEED OIL
  29. PRISTIQ EXTENDED RELEASE [Concomitant]
     Active Substance: DESVENLAFAXINE SUCCINATE
     Route: 065

REACTIONS (33)
  - Peripheral swelling [Not Recovered/Not Resolved]
  - Drug ineffective [Unknown]
  - Decreased appetite [Unknown]
  - Nausea [Unknown]
  - Feeding disorder [Unknown]
  - Genital infection [Not Recovered/Not Resolved]
  - Renal disorder [Not Recovered/Not Resolved]
  - Dementia Alzheimer^s type [Not Recovered/Not Resolved]
  - Depression [Unknown]
  - Pneumonia [Not Recovered/Not Resolved]
  - Lung infection [Unknown]
  - Weight decreased [Unknown]
  - Immunodeficiency [Not Recovered/Not Resolved]
  - Urinary tract infection [Unknown]
  - Fall [Unknown]
  - Pain [Not Recovered/Not Resolved]
  - Asthenia [Unknown]
  - Neoplasm malignant [Unknown]
  - Sepsis [Not Recovered/Not Resolved]
  - Headache [Unknown]
  - Memory impairment [Unknown]
  - Dementia [Not Recovered/Not Resolved]
  - Immunosuppression [Unknown]
  - Pneumonia [Unknown]
  - Femur fracture [Unknown]
  - Pruritus [Not Recovered/Not Resolved]
  - Dizziness [Unknown]
  - Blood pressure decreased [Not Recovered/Not Resolved]
  - Sepsis [Unknown]
  - Hand deformity [Not Recovered/Not Resolved]
  - Breast mass [Unknown]
  - Malaise [Unknown]
  - Skin discolouration [Not Recovered/Not Resolved]

NARRATIVE: CASE EVENT DATE: 201301
